FAERS Safety Report 21486419 (Version 1)
Quarter: 2022Q4

REPORT INFORMATION
  Report Type: Spontaneous
  Country: US (occurrence: None)
  Receive Date: 20221019
  Receipt Date: 20221019
  Transmission Date: 20230112
  Serious: Yes (unspecified)
  Sender: FDA-Public Use
  Company Number: None

PATIENT
  Age: 78 Year
  Sex: Female
  Weight: 87 kg

DRUGS (2)
  1. CAPECITABINE [Suspect]
     Active Substance: CAPECITABINE
     Indication: Bile duct cancer
     Dosage: OTHER FREQUENCY : BID X 14 DAY;?
     Route: 048
     Dates: start: 20221007
  2. GEMZAR [Suspect]
     Active Substance: GEMCITABINE HYDROCHLORIDE

REACTIONS (4)
  - Peripheral swelling [None]
  - Joint swelling [None]
  - Stomatitis [None]
  - Myalgia [None]

NARRATIVE: CASE EVENT DATE: 20221019
